FAERS Safety Report 10420237 (Version 1)
Quarter: 2014Q3

REPORT INFORMATION
  Report Type: Spontaneous
  Country: US (occurrence: None)
  Receive Date: 20140701
  Receipt Date: 20140701
  Transmission Date: 20150326
  Serious: No
  Sender: FDA-Public Use
  Company Number: 1000066150

PATIENT
  Sex: Female

DRUGS (11)
  1. ATENOLOL. [Concomitant]
     Active Substance: ATENOLOL
  2. FISH OIL [Concomitant]
     Active Substance: FISH OIL
  3. LIPITOR [Concomitant]
     Active Substance: ATORVASTATIN CALCIUM
  4. ZOLOFT [Concomitant]
     Active Substance: SERTRALINE HYDROCHLORIDE
  5. MULTIVITAMIN [Concomitant]
     Active Substance: VITAMINS
  6. POTASSIUM CHLORIDE. [Concomitant]
     Active Substance: POTASSIUM CHLORIDE
  7. LINZESS [Suspect]
     Active Substance: LINACLOTIDE
     Indication: CONSTIPATION
     Route: 048
     Dates: start: 20140315, end: 20140321
  8. PEPCID [Concomitant]
     Active Substance: FAMOTIDINE
  9. LASIX [Concomitant]
     Active Substance: FUROSEMIDE
  10. DEXILANT [Concomitant]
     Active Substance: DEXLANSOPRAZOLE
  11. XANAX [Concomitant]
     Active Substance: ALPRAZOLAM

REACTIONS (3)
  - Abdominal pain [None]
  - Drug ineffective [None]
  - Flatulence [None]

NARRATIVE: CASE EVENT DATE: 20140315
